FAERS Safety Report 5826261-X (Version None)
Quarter: 2008Q3

REPORT INFORMATION
  Report Type: 
  Country: None (occurrence: None)
  Receive Date: 20080729
  Receipt Date: 20080718
  Transmission Date: 20090109
  Serious: Yes (Hospitalization)
  Sender: FDA-Public Use
  Company Number: US-PFIZER INC-2008047797

PATIENT
  Sex: Male
  Weight: 107 kg

DRUGS (2)
  1. SU-011,248 [Suspect]
     Indication: METASTATIC RENAL CELL CARCINOMA
     Route: 048
     Dates: start: 20060127, end: 20080221
  2. SYNTHROID [Concomitant]
     Route: 048

REACTIONS (1)
  - PERICARDIAL EFFUSION [None]
